FAERS Safety Report 6056949-X (Version None)
Quarter: 2009Q1

REPORT INFORMATION
  Report Type: 
  Country: None (occurrence: None)
  Receive Date: 20090126
  Receipt Date: 20090107
  Transmission Date: 20090719
  Serious: Yes (Death)
  Sender: FDA-Public Use
  Company Number: B0553738A

PATIENT
  Age: 56 Year
  Sex: Female

DRUGS (6)
  1. LAMOTRIGINE [Suspect]
     Dosage: ORAL
     Route: 048
  2. IBUPROFEN [Suspect]
  3. QUETIAPINE FUMARATE [Suspect]
  4. CARBAMAZEPINE [Suspect]
  5. DULOXETINE (FORMULATION UNKNOWN) (DULOXETINE) [Concomitant]
  6. LORAZEPAM [Suspect]

REACTIONS (1)
  - COMPLETED SUICIDE [None]
